FAERS Safety Report 20966696 (Version 1)
Quarter: 2022Q2

REPORT INFORMATION
  Report Type: Spontaneous
  Country: FR (occurrence: FR)
  Receive Date: 20220616
  Receipt Date: 20220616
  Transmission Date: 20220720
  Serious: Yes (Hospitalization)
  Sender: FDA-Public Use
  Company Number: FR-STRIDES ARCOLAB LIMITED-2022SP007243

PATIENT
  Age: 82 Year
  Sex: Female

DRUGS (8)
  1. CETIRIZINE [Suspect]
     Active Substance: CETIRIZINE HYDROCHLORIDE
     Indication: Product used for unknown indication
     Dosage: UNK (INGESTED)
     Route: 048
  2. MONTELUKAST [Suspect]
     Active Substance: MONTELUKAST SODIUM
     Indication: Product used for unknown indication
     Dosage: UNK (INGESTED)
     Route: 048
  3. DABIGATRAN [Suspect]
     Active Substance: DABIGATRAN
     Indication: Anticoagulant therapy
     Dosage: UNK
     Route: 048
  4. QUETIAPINE [Suspect]
     Active Substance: QUETIAPINE
     Indication: Product used for unknown indication
     Dosage: UNK (INGESTED)
     Route: 048
  5. VENLAFAXINE [Suspect]
     Active Substance: VENLAFAXINE HYDROCHLORIDE
     Indication: Product used for unknown indication
     Dosage: UNK (INGESTED)
     Route: 048
  6. ZOPICLONE [Suspect]
     Active Substance: ZOPICLONE
     Indication: Product used for unknown indication
     Dosage: UNK (INGESTED)
     Route: 048
  7. LORAZEPAM [Suspect]
     Active Substance: LORAZEPAM
     Indication: Product used for unknown indication
     Dosage: UNK (INGESTED)
     Route: 048
  8. ACETAMINOPHEN [Suspect]
     Active Substance: ACETAMINOPHEN
     Indication: Product used for unknown indication
     Dosage: UNK (INGESTED)
     Route: 048

REACTIONS (3)
  - Suicide attempt [Unknown]
  - Somnolence [Unknown]
  - Renal failure [Unknown]
